FAERS Safety Report 17302171 (Version 1)
Quarter: 2020Q1

REPORT INFORMATION
  Report Type: Spontaneous
  Country: SE (occurrence: SE)
  Receive Date: 20200122
  Receipt Date: 20200122
  Transmission Date: 20200409
  Serious: Yes (Hospitalization)
  Sender: FDA-Public Use
  Company Number: SE-MYLANLABS-2020M1007579

PATIENT
  Age: 15 Year
  Sex: Female
  Weight: 50 kg

DRUGS (2)
  1. LERGIGAN (PROMETHAZINE HYDROCHLORIDE) [Suspect]
     Active Substance: PROMETHAZINE HYDROCHLORIDE
     Indication: PRODUCT USED FOR UNKNOWN INDICATION
     Dosage: 4 ST LERGIGAN 25 MG
     Route: 048
     Dates: start: 20180514, end: 20180514
  2. IPREN [Suspect]
     Active Substance: IBUPROFEN
     Indication: PRODUCT USED FOR UNKNOWN INDICATION
     Dosage: 11 ST IPREN 400 MG 4.4 G
     Route: 048
     Dates: start: 20180514, end: 20180514

REACTIONS (5)
  - Headache [Unknown]
  - Suicide attempt [Unknown]
  - Intentional overdose [Unknown]
  - Fatigue [Unknown]
  - Slow speech [Unknown]

NARRATIVE: CASE EVENT DATE: 20180514
